FAERS Safety Report 4870400-4 (Version None)
Quarter: 2005Q4

REPORT INFORMATION
  Report Type: 
  Country: None (occurrence: None)
  Receive Date: 20051228
  Receipt Date: 20051216
  Transmission Date: 20060501
  Serious: Yes (Hospitalization)
  Sender: FDA-Public Use
  Company Number: 2005170603

PATIENT
  Age: 33 Year
  Sex: Female
  Weight: 58.9676 kg

DRUGS (2)
  1. ALDACTONE [Suspect]
     Indication: HIRSUTISM
     Dosage: 200 MG (100 MG, BID; INTERVAL:  DAILY)
  2. OVCON-35 [Concomitant]

REACTIONS (3)
  - DRUG WITHDRAWAL SYNDROME [None]
  - MANIA [None]
  - NOCTURIA [None]
